FAERS Safety Report 16855307 (Version 2)
Quarter: 2020Q4

REPORT INFORMATION
  Report Type: Spontaneous
  Country: GB (occurrence: GB)
  Receive Date: 20190926
  Receipt Date: 20201119
  Transmission Date: 20210113
  Serious: Yes (Other)
  Sender: FDA-Public Use
  Company Number: GB-GLAXOSMITHKLINE-GB2019160362

PATIENT
  Age: 23 Year
  Sex: Male

DRUGS (5)
  1. CYCLOPENTOLATE. [Suspect]
     Active Substance: CYCLOPENTOLATE
     Indication: PRODUCT USED FOR UNKNOWN INDICATION
     Dosage: 3 %, QD (1 PERCENT, TID)
     Route: 065
  2. CHLORAMPHENICOL + PREDNISOLONE [Suspect]
     Active Substance: CHLORAMPHENICOL\PREDNISOLONE
     Indication: PRODUCT USED FOR UNKNOWN INDICATION
     Dosage: 0.5 % FOUR TIMES PER DAY
     Route: 061
  3. DICLOFENAC SODIUM. [Suspect]
     Active Substance: DICLOFENAC SODIUM
     Indication: PRODUCT USED FOR UNKNOWN INDICATION
     Dosage: 0.4 %, QID
     Route: 061
  4. HYALURONATE SODIUM [Suspect]
     Active Substance: HYALURONATE SODIUM
     Indication: PRODUCT USED FOR UNKNOWN INDICATION
     Dosage: 0.2 %, Q2H EVERY TWO HOURS
     Route: 061
  5. CHLORAMPHENICOL + PREDNISOLONE [Suspect]
     Active Substance: CHLORAMPHENICOL\PREDNISOLONE
     Dosage: 1.0 %, QID
     Route: 061

REACTIONS (2)
  - Visual impairment [Recovering/Resolving]
  - Keratopathy [Recovered/Resolved with Sequelae]
